FAERS Safety Report 23294020 (Version 4)
Quarter: 2024Q2

REPORT INFORMATION
  Report Type: Spontaneous
  Country: JP (occurrence: None)
  Receive Date: 20231213
  Receipt Date: 20240625
  Transmission Date: 20240716
  Serious: Yes (Hospitalization, Other)
  Sender: FDA-Public Use
  Company Number: 2023A257206

PATIENT
  Age: 67 Year
  Sex: Female
  Weight: 57 kg

DRUGS (11)
  1. IMFINZI [Suspect]
     Active Substance: DURVALUMAB
     Indication: Non-small cell lung cancer
     Route: 041
     Dates: start: 20231012, end: 20240424
  2. IMJUDO [Suspect]
     Active Substance: TREMELIMUMAB\TREMELIMUMAB-ACTL
     Indication: Non-small cell lung cancer
     Route: 041
     Dates: start: 20231012, end: 20231012
  3. PEMETREXED [Suspect]
     Active Substance: PEMETREXED
     Dosage: DOSE UNKNOWN880.0MG UNKNOWN
     Dates: start: 20231012, end: 20231012
  4. PEMETREXED [Suspect]
     Active Substance: PEMETREXED
     Dosage: DOSE UNKNOWN500.0MG UNKNOWN
     Dates: start: 20231115, end: 20240110
  5. PEMETREXED [Suspect]
     Active Substance: PEMETREXED
     Dosage: DOSE UNKNOWN640.0MG UNKNOWN
     Dates: start: 20240131, end: 20240424
  6. CARBOPLATIN [Concomitant]
     Active Substance: CARBOPLATIN
     Indication: Non-small cell lung cancer
     Dosage: DOSE UNKNOWN
     Dates: start: 20231012, end: 20231012
  7. CARBOPLATIN [Concomitant]
     Active Substance: CARBOPLATIN
     Indication: Non-small cell lung cancer
     Dosage: DOSE UNKNOWN
     Dates: start: 20231115, end: 20240110
  8. ARIMIDEX [Concomitant]
     Active Substance: ANASTROZOLE
     Indication: Non-small cell lung cancer
     Dosage: DOSE UNKNOWN
     Route: 048
  9. OLODATEROL HYDROCHLORIDE\TIOTROPIUM BROMIDE MONOHYDRATE [Concomitant]
     Active Substance: OLODATEROL HYDROCHLORIDE\TIOTROPIUM BROMIDE MONOHYDRATE
     Indication: Non-small cell lung cancer
     Dosage: DOSE UNKNOWN
     Route: 055
     Dates: start: 20181212
  10. HYDROXOCOBALAMIN [Concomitant]
     Active Substance: HYDROXOCOBALAMIN
     Indication: Non-small cell lung cancer
     Dosage: DOSE UNKNOWN
     Dates: start: 20231005
  11. METHYLCOBALAMIN [Concomitant]
     Active Substance: METHYLCOBALAMIN
     Indication: Non-small cell lung cancer
     Dosage: DOSE UNKNOWN
     Dates: start: 20231213, end: 20240327

REACTIONS (8)
  - Rash maculo-papular [Recovering/Resolving]
  - Erythema multiforme [Recovering/Resolving]
  - Skin disorder [Recovering/Resolving]
  - Dermatitis [Recovering/Resolving]
  - Pigmentation disorder [Not Recovered/Not Resolved]
  - Pneumonitis [Unknown]
  - Pruritus [Recovering/Resolving]
  - Rash [Recovering/Resolving]

NARRATIVE: CASE EVENT DATE: 20231016
